FAERS Safety Report 14834019 (Version 1)
Quarter: 2018Q2

REPORT INFORMATION
  Report Type: Spontaneous
  Country: US (occurrence: US)
  Receive Date: 20180501
  Receipt Date: 20180501
  Transmission Date: 20180711
  Serious: No
  Sender: FDA-Public Use
  Company Number: US-ROCHE-2016139

PATIENT
  Age: 66 Year
  Sex: Female
  Weight: 59.02 kg

DRUGS (1)
  1. AVASTIN [Suspect]
     Active Substance: BEVACIZUMAB
     Indication: COLON CANCER STAGE IV
     Dosage: ONGOING: YES
     Route: 042

REACTIONS (1)
  - Exostosis [Not Recovered/Not Resolved]
